FAERS Safety Report 10060737 (Version 1)
Quarter: 2014Q2

REPORT INFORMATION
  Report Type: Spontaneous
  Country: US (occurrence: US)
  Receive Date: 20140404
  Receipt Date: 20140404
  Transmission Date: 20141212
  Serious: Yes (Hospitalization)
  Sender: FDA-Public Use
  Company Number: US-ELI_LILLY_AND_COMPANY-US201403009562

PATIENT
  Age: 35 Year
  Sex: Female

DRUGS (13)
  1. PROZAC [Suspect]
     Indication: PRODUCT USED FOR UNKNOWN INDICATION
     Dosage: 50MG, DAILY
     Route: 065
  2. PROZAC [Interacting]
     Dosage: 20MG DAILY
     Route: 065
     Dates: start: 20131016
  3. PROZAC [Interacting]
     Dosage: 30MG, DAILY
     Route: 065
     Dates: start: 20131108
  4. CLOBAZAM [Interacting]
     Indication: PRODUCT USED FOR UNKNOWN INDICATION
     Dosage: 5MG, ORALLY AT BETIME X 2 WEEKS
     Route: 048
  5. CLOBAZAM [Interacting]
     Dosage: 5MG, TWICE DAILY
     Dates: start: 20130909, end: 20131010
  6. CARBAMAZEPINE [Concomitant]
     Indication: PRODUCT USED FOR UNKNOWN INDICATION
     Dosage: 200MG QAM
     Dates: end: 20130823
  7. CARBAMAZEPINE [Concomitant]
     Dosage: 400MG EACH EVENING
     Dates: end: 20130823
  8. LORAZEPAM [Concomitant]
     Indication: CONVULSION
     Dosage: 1MG, UNK
     Route: 048
  9. LEVETIRACETAM [Concomitant]
     Indication: PRODUCT USED FOR UNKNOWN INDICATION
     Dosage: 1500 MG, BID
  10. TOPIRAMATE [Concomitant]
     Indication: PRODUCT USED FOR UNKNOWN INDICATION
     Dosage: 25MG, TWICE DAILY
     Dates: end: 20131013
  11. LAMOTRIGINE [Concomitant]
     Indication: PRODUCT USED FOR UNKNOWN INDICATION
     Dosage: 225MG, EACH MORNING
  12. LAMOTRIGINE [Concomitant]
     Dosage: 300MG, EACH EVENING
  13. CALCIUM CARBONATE + VITAMIN D [Concomitant]
     Indication: PRODUCT USED FOR UNKNOWN INDICATION

REACTIONS (5)
  - Drug interaction [Unknown]
  - Bradykinesia [Unknown]
  - Insomnia [Unknown]
  - Skin disorder [Unknown]
  - Memory impairment [Unknown]
